FAERS Safety Report 13079048 (Version 1)
Quarter: 2017Q1

REPORT INFORMATION
  Report Type: Spontaneous
  Country: US (occurrence: US)
  Receive Date: 20170102
  Receipt Date: 20170102
  Transmission Date: 20170428
  Serious: No
  Sender: FDA-Public Use
  Company Number: US-ASTRAZENECA-2016SF35736

PATIENT
  Age: 20392 Day
  Sex: Female
  Weight: 66.7 kg

DRUGS (5)
  1. PRILOSEC OTC [Suspect]
     Active Substance: OMEPRAZOLE MAGNESIUM
     Indication: GASTROOESOPHAGEAL REFLUX DISEASE
     Route: 048
     Dates: start: 20161218
  2. PRILOSEC [Suspect]
     Active Substance: OMEPRAZOLE MAGNESIUM
     Indication: GASTROOESOPHAGEAL REFLUX DISEASE
     Route: 048
     Dates: start: 1998, end: 20161217
  3. PREVACID [Concomitant]
     Active Substance: LANSOPRAZOLE
  4. SYNTHROID [Concomitant]
     Active Substance: LEVOTHYROXINE SODIUM
  5. HORMONE [Concomitant]
     Active Substance: UNSPECIFIED INGREDIENT

REACTIONS (6)
  - Expired product administered [Unknown]
  - Insomnia [Unknown]
  - Intentional product misuse [Unknown]
  - Burn oral cavity [Unknown]
  - Dyspepsia [Unknown]
  - Throat irritation [Unknown]

NARRATIVE: CASE EVENT DATE: 20161218
